FAERS Safety Report 17056931 (Version 1)
Quarter: 2019Q4

REPORT INFORMATION
  Report Type: Spontaneous
  Country: US (occurrence: US)
  Receive Date: 20191022
  Receipt Date: 20191022
  Transmission Date: 20200122
  Serious: No
  Sender: FDA-Public Use
  Company Number: None

PATIENT
  Age: 68 Year
  Sex: Female

DRUGS (1)
  1. PROCRIT [Suspect]
     Active Substance: ERYTHROPOIETIN
     Dosage: ?          OTHER STRENGTH:20000U/ML;OTHER DOSE:30,000 UNITS;?
     Route: 058
     Dates: start: 201905

REACTIONS (2)
  - Haemoglobin decreased [None]
  - Gout [None]

NARRATIVE: CASE EVENT DATE: 20190910
